FAERS Safety Report 6179756-6 (Version None)
Quarter: 2009Q2

REPORT INFORMATION
  Report Type: 
  Country: None (occurrence: None)
  Receive Date: 20090505
  Receipt Date: 20090423
  Transmission Date: 20091009
  Serious: Yes (Other)
  Sender: FDA-Public Use
  Company Number: GB-BRISTOL-MYERS SQUIBB COMPANY-14601447

PATIENT
  Sex: Male

DRUGS (1)
  1. SINEMET CR [Suspect]
     Dosage: 1 DF = 25/100MG (25/50MG CONTROL RELEASED TAB, 25/50MG)
     Route: 048

REACTIONS (1)
  - SKIN CANCER [None]
